FAERS Safety Report 21887577 (Version 1)
Quarter: 2023Q1

REPORT INFORMATION
  Report Type: Spontaneous
  Country: FR (occurrence: FR)
  Receive Date: 20230120
  Receipt Date: 20230120
  Transmission Date: 20230418
  Serious: Yes (Other)
  Sender: FDA-Public Use
  Company Number: FR-SUN PHARMACEUTICAL INDUSTRIES LTD-2023RR-373935

PATIENT
  Sex: Male

DRUGS (6)
  1. PREGABALIN [Interacting]
     Active Substance: PREGABALIN
     Indication: Product used for unknown indication
     Dosage: 5700 NG/ML, UNK
     Route: 065
  2. BUPRENORPHINE [Interacting]
     Active Substance: BUPRENORPHINE
     Indication: Product used for unknown indication
     Dosage: 4.5 NG/ML, UNK
     Route: 065
  3. NORBUPRENORPHINE [Concomitant]
     Active Substance: NORBUPRENORPHINE
     Indication: Product used for unknown indication
     Dosage: 0.5 NG/ML
     Route: 065
  4. 7-AMINOCLONAZEPAM [Concomitant]
     Active Substance: 7-AMINOCLONAZEPAM
     Indication: Product used for unknown indication
     Dosage: 23 NG/ML
     Route: 065
  5. MIDOMAFETAMINE [Concomitant]
     Active Substance: MIDOMAFETAMINE
     Indication: Product used for unknown indication
     Dosage: 1140 NG/ML
     Route: 065
  6. TENAMFETAMINE [Concomitant]
     Active Substance: TENAMFETAMINE
     Indication: Product used for unknown indication
     Dosage: 54 NG/ML
     Route: 065

REACTIONS (2)
  - Drug abuse [Unknown]
  - Drug interaction [Unknown]
